FAERS Safety Report 23684050 (Version 1)
Quarter: 2024Q1

REPORT INFORMATION
  Report Type: Spontaneous
  Country: US (occurrence: US)
  Receive Date: 20240328
  Receipt Date: 20240328
  Transmission Date: 20240409
  Serious: No
  Sender: FDA-Public Use
  Company Number: US-TEVA-VS-3148868

PATIENT

DRUGS (1)
  1. CLONAZEPAM [Suspect]
     Active Substance: CLONAZEPAM
     Indication: Product used for unknown indication

REACTIONS (6)
  - Feeling abnormal [Unknown]
  - Oral contraception [Unknown]
  - Bereavement [Unknown]
  - Generalised anxiety disorder [Unknown]
  - Head injury [Unknown]
  - Cupping therapy [Unknown]
